FAERS Safety Report 9617392 (Version 1)
Quarter: 2013Q4

REPORT INFORMATION
  Report Type: Report from Study
  Country: CA (occurrence: CA)
  Receive Date: 20131011
  Receipt Date: 20131011
  Transmission Date: 20140711
  Serious: Yes (Other)
  Sender: FDA-Public Use
  Company Number: CA-JNJFOC-20131004074

PATIENT
  Age: 44 Year
  Sex: Female
  Weight: 71.67 kg

DRUGS (2)
  1. REMICADE [Suspect]
     Indication: RHEUMATOID ARTHRITIS
     Route: 042
     Dates: start: 2011
  2. REMICADE [Suspect]
     Indication: RHEUMATOID ARTHRITIS
     Route: 042
     Dates: start: 201309

REACTIONS (3)
  - Osteoporosis [Unknown]
  - Condition aggravated [Recovering/Resolving]
  - Psoriatic arthropathy [Recovering/Resolving]
